FAERS Safety Report 5607002-8 (Version None)
Quarter: 2008Q1

REPORT INFORMATION
  Report Type: 
  Country: None (occurrence: None)
  Receive Date: 20080129
  Receipt Date: 20071214
  Transmission Date: 20080703
  Serious: Yes (Hospitalization)
  Sender: FDA-Public Use
  Company Number: US-MERCK-0712USA08644

PATIENT
  Age: 54 Year
  Sex: Male

DRUGS (11)
  1. MK-0518 [Suspect]
     Indication: HIV INFECTION
     Route: 048
     Dates: start: 20071106
  2. UK-427857 [Suspect]
     Indication: HIV INFECTION
     Route: 048
     Dates: start: 20071106
  3. ACTOS [Concomitant]
     Route: 048
     Dates: start: 20070911
  4. METFORMIN [Concomitant]
     Route: 048
     Dates: start: 20060117
  5. EPIVIR [Concomitant]
     Route: 065
     Dates: start: 20071106
  6. NORVIR [Concomitant]
     Route: 065
     Dates: start: 20071106
  7. NORVASC [Suspect]
     Route: 048
     Dates: start: 20071211
  8. BLOPRESS [Suspect]
     Indication: HYPERTENSION
     Route: 048
     Dates: start: 20071211
  9. RAMIPRIL [Suspect]
     Indication: HYPERTENSION
     Route: 048
     Dates: start: 20071204, end: 20071211
  10. TMC-125 [Concomitant]
     Route: 048
     Dates: start: 20071106
  11. EBRANTIL [Concomitant]
     Route: 048
     Dates: start: 20071218

REACTIONS (2)
  - DRUG INTERACTION [None]
  - HYPERTENSIVE CRISIS [None]
